FAERS Safety Report 8906175 (Version 1)
Quarter: 2012Q4

REPORT INFORMATION
  Report Type: Spontaneous
  Country: FR (occurrence: None)
  Receive Date: 20121109
  Receipt Date: 20121109
  Transmission Date: 20130627
  Serious: Yes (Death, Hospitalization)
  Sender: FDA-Public Use
  Company Number: IMP_06062_2012

PATIENT
  Age: 13 Year
  Sex: Male

DRUGS (4)
  1. CHLOROQUINE [Suspect]
     Dosage: ((not the prescribed dose))
  2. ATENOLOL [Suspect]
     Dosage: ((not the prescribed dose))
  3. ACETAMINOPHEN [Suspect]
     Dosage: ((not the prescribed dose))
  4. ACETYLSALICYLIC ACID [Suspect]
     Dosage: ((not the prescribed dose))

REACTIONS (15)
  - Dyspnoea [None]
  - Chest pain [None]
  - Heart rate increased [None]
  - Agitation [None]
  - Confusional state [None]
  - Grand mal convulsion [None]
  - Cardiac arrest [None]
  - Cardiac arrest [None]
  - Acidosis [None]
  - Hyperlactacidaemia [None]
  - Hypokalaemia [None]
  - Hepatocellular injury [None]
  - Toxicity to various agents [None]
  - Cardiac failure [None]
  - Haemorrhage [None]
